FAERS Safety Report 19522597 (Version 1)
Quarter: 2021Q3

REPORT INFORMATION
  Report Type: Spontaneous
  Country: CN (occurrence: CN)
  Receive Date: 20210712
  Receipt Date: 20210712
  Transmission Date: 20211014
  Serious: Yes (Hospitalization)
  Sender: FDA-Public Use
  Company Number: CN-BRISTOL-MYERS SQUIBB COMPANY-BMS-2021-065402

PATIENT
  Age: 37 Year
  Sex: Male

DRUGS (3)
  1. IRINOTECAN [Concomitant]
     Active Substance: IRINOTECAN
     Indication: COLON CANCER
     Dosage: 280 MG D2
     Route: 065
     Dates: start: 20190805
  2. IPILIMUMAB [Suspect]
     Active Substance: IPILIMUMAB
     Indication: COLON CANCER
     Dosage: 50 MGDL ONCE DAILY
     Route: 065
     Dates: start: 20190805
  3. NIVOLUMAB [Suspect]
     Active Substance: NIVOLUMAB
     Indication: COLON CANCER
     Dosage: 200 MG DL ONCE DAILY
     Route: 065
     Dates: start: 20190805

REACTIONS (1)
  - Palmar-plantar erythrodysaesthesia syndrome [Recovering/Resolving]
